FAERS Safety Report 17351660 (Version 4)
Quarter: 2020Q1

REPORT INFORMATION
  Report Type: Report from Study
  Country: CA (occurrence: CA)
  Receive Date: 20200130
  Receipt Date: 20200313
  Transmission Date: 20200409
  Serious: Yes (Hospitalization)
  Sender: FDA-Public Use
  Company Number: CA-EXELIXIS-CABO-20027030

PATIENT
  Sex: Female
  Weight: 75 kg

DRUGS (15)
  1. DILTIAZEM. [Concomitant]
     Active Substance: DILTIAZEM
  2. PREGABALINE [Concomitant]
     Active Substance: PREGABALIN
  3. EFUDEX CREAM [Concomitant]
  4. ELIQUIS [Concomitant]
     Active Substance: APIXABAN
  5. ROSUVASTATIN. [Concomitant]
     Active Substance: ROSUVASTATIN
  6. TELMISARTAN. [Concomitant]
     Active Substance: TELMISARTAN
  7. SYNTHROID [Concomitant]
     Active Substance: LEVOTHYROXINE SODIUM
  8. CABOMETYX [Suspect]
     Active Substance: CABOZANTINIB S-MALATE
     Dosage: 20 MG, QD
     Route: 048
  9. OPUS CAL-D [Concomitant]
  10. CABOMETYX [Suspect]
     Active Substance: CABOZANTINIB S-MALATE
     Indication: RENAL CELL CARCINOMA
     Dosage: 40 MG, QD(2X20MG)
     Route: 048
     Dates: start: 20191024
  11. CABOMETYX [Suspect]
     Active Substance: CABOZANTINIB S-MALATE
     Dosage: 60 MG, QD
     Route: 048
     Dates: end: 20200203
  12. DEXILANT [Concomitant]
     Active Substance: DEXLANSOPRAZOLE
  13. LYDERM CREAM [Concomitant]
  14. M K20 [Concomitant]
  15. NITRO-DUR PATCH [Concomitant]

REACTIONS (6)
  - Peripheral swelling [Recovering/Resolving]
  - Skin wound [Unknown]
  - Blood pressure fluctuation [Unknown]
  - Dehydration [Unknown]
  - Blister [Recovering/Resolving]
  - Diarrhoea [Unknown]
